FAERS Safety Report 10373299 (Version 1)
Quarter: 2014Q3

REPORT INFORMATION
  Report Type: Spontaneous
  Country: US (occurrence: US)
  Receive Date: 20140808
  Receipt Date: 20140808
  Transmission Date: 20150326
  Serious: No
  Sender: FDA-Public Use
  Company Number: US-BRISTOL-MYERS SQUIBB COMPANY-20417242

PATIENT
  Age: 64 Year
  Sex: Male

DRUGS (1)
  1. SPRYCEL (CML) TABS 20 MG [Suspect]
     Active Substance: DASATINIB
     Indication: CHRONIC MYELOID LEUKAEMIA
     Route: 048
     Dates: start: 20120305, end: 20140219

REACTIONS (2)
  - Pain [Unknown]
  - Irritability [Unknown]
